FAERS Safety Report 4791268-0 (Version None)
Quarter: 2005Q4

REPORT INFORMATION
  Report Type: 
  Country: None (occurrence: None)
  Receive Date: 20051005
  Receipt Date: 20050809
  Transmission Date: 20060501
  Serious: Yes (Hospitalization)
  Sender: FDA-Public Use
  Company Number: 2005BH001101

PATIENT
  Age: 50 Year
  Sex: Female
  Weight: 67 kg

DRUGS (2)
  1. SODIUM CHLORIDE [Suspect]
     Indication: PERIPHERAL BLOOD STEM CELL APHERESIS
     Dosage: 600 ML; AS NEEDED; IV
     Route: 042
     Dates: start: 20050808, end: 20050808
  2. ANTICOAGULANT CITRATE DEXTROSE [Concomitant]

REACTIONS (9)
  - DIZZINESS [None]
  - DRUG INEFFECTIVE [None]
  - HYPOAESTHESIA [None]
  - INFUSION RELATED REACTION [None]
  - MUSCLE SPASMS [None]
  - PARAESTHESIA [None]
  - SUPRAVENTRICULAR TACHYCARDIA [None]
  - TACHYCARDIA [None]
  - VOMITING [None]
